FAERS Safety Report 6552713-3 (Version None)
Quarter: 2010Q1

REPORT INFORMATION
  Report Type: 
  Country: None (occurrence: None)
  Receive Date: 20100126
  Receipt Date: 20100114
  Transmission Date: 20100710
  Serious: Yes (Other)
  Sender: FDA-Public Use
  Company Number: US-ELI_LILLY_AND_COMPANY-US201001004847

PATIENT
  Sex: Female

DRUGS (15)
  1. FORTEO [Suspect]
     Indication: OSTEOPENIA
     Dosage: 20 UG, DAILY (1/D)
     Dates: start: 20090701, end: 20100101
  2. FIORICET [Concomitant]
     Indication: PAIN
     Dosage: 6/DAY
  3. PEPCID [Concomitant]
     Dosage: 2/DAY
  4. LIBRAX [Concomitant]
     Dosage: 3/DAY
  5. DONNATAL [Concomitant]
     Dosage: 1/8 TABLET, HS WEEKLY AS NEEDED
  6. RELPAX [Concomitant]
     Indication: MIGRAINE
     Dosage: 20 MG, AS NEEDED
  7. FLUOXETINE [Concomitant]
     Dosage: 40 MG, 2 A DAY
  8. ACIPHEX [Concomitant]
     Dosage: 20 MG, DAILY (1/D)
  9. ALLEGRA [Concomitant]
     Dosage: 180 MG, DAILY (1/D)
  10. LEVOTHYROXINE SODIUM [Concomitant]
     Dosage: 0.175 MG, MON, WED, FRI.
  11. VERAMYST [Concomitant]
     Indication: HYPERSENSITIVITY
     Dosage: 27.5 UG, 2 SPRAY/DAY
  12. OPTIVAR [Concomitant]
     Indication: DRY EYE
  13. DARVOCET-N 100 [Concomitant]
     Dosage: 2 TABS DAILY
  14. TOPAMAX [Concomitant]
     Dosage: 25 MG, 3 TABS/DAY
  15. CALTRATE +D [Concomitant]
     Dosage: UNK, DAILY (1/D)

REACTIONS (3)
  - ARTHRITIS [None]
  - BREAST CANCER [None]
  - BREAST MASS [None]
